FAERS Safety Report 11251724 (Version 1)
Quarter: 2015Q3

REPORT INFORMATION
  Report Type: Spontaneous
  Country: US (occurrence: US)
  Receive Date: 20150708
  Receipt Date: 20150708
  Transmission Date: 20151125
  Serious: No
  Sender: FDA-Public Use
  Company Number: US-ELI_LILLY_AND_COMPANY-US201206005744

PATIENT
  Age: 50 Year
  Sex: Female
  Weight: 72.56 kg

DRUGS (3)
  1. PROGESTIN [Concomitant]
     Active Substance: PROGESTERONE
     Dosage: UNK
  2. DIVIGEL [Concomitant]
     Active Substance: ESTRADIOL
     Indication: HOT FLUSH
     Dosage: 1 MG, QD
     Route: 061
     Dates: start: 201109, end: 201205
  3. PROZAC [Suspect]
     Active Substance: FLUOXETINE HYDROCHLORIDE
     Indication: MENOPAUSE
     Dosage: UNK
     Dates: start: 201109

REACTIONS (2)
  - Off label use [Unknown]
  - Weight increased [Not Recovered/Not Resolved]

NARRATIVE: CASE EVENT DATE: 201109
